FAERS Safety Report 7052750-9 (Version None)
Quarter: 2010Q4

REPORT INFORMATION
  Report Type: 
  Country: None (occurrence: None)
  Receive Date: 20101012
  Receipt Date: 20100929
  Transmission Date: 20110411
  Serious: Yes (Hospitalization)
  Sender: FDA-Public Use
  Company Number: WAES 1009USA05593

PATIENT
  Age: 57 Year
  Sex: Female

DRUGS (3)
  1. ZOCOR [Suspect]
     Indication: HYPERLIPIDAEMIA
     Dosage: 20 MG/PO
     Route: 048
     Dates: start: 20090901
  2. INFUSION (FORM) TANEZUMAB UNK [Suspect]
     Indication: OSTEOARTHRITIS
     Dosage: PO
     Route: 048
     Dates: start: 20100331, end: 20100526
  3. HYDROCHLOROTHIAZIDE [Concomitant]

REACTIONS (2)
  - GASTRITIS [None]
  - HEPATIC ENZYME ABNORMAL [None]
